FAERS Safety Report 7642930-3 (Version None)
Quarter: 2011Q3

REPORT INFORMATION
  Report Type: 
  Country: None (occurrence: None)
  Receive Date: 20110728
  Receipt Date: 20110727
  Transmission Date: 20111222
  Serious: Yes (Other)
  Sender: FDA-Public Use
  Company Number: BE-ABBOTT-11P-013-0734658-00

PATIENT
  Sex: Female
  Weight: 57.5 kg

DRUGS (7)
  1. FOLIC ACID [Concomitant]
     Indication: PRODUCT USED FOR UNKNOWN INDICATION
     Dosage: 6MG/WEEK
     Route: 048
     Dates: start: 20100310
  2. HYALURONIC ACID [Concomitant]
     Indication: PRODUCT USED FOR UNKNOWN INDICATION
  3. METHOTREXATE [Concomitant]
     Indication: PRODUCT USED FOR UNKNOWN INDICATION
     Dosage: 20 MG/WEEK
     Route: 048
     Dates: start: 20100310
  4. METHYLPREDNISOLONE [Concomitant]
     Indication: PRODUCT USED FOR UNKNOWN INDICATION
     Dosage: 1 GM DAILY
  5. HUMIRA [Suspect]
     Indication: RHEUMATOID ARTHRITIS
     Dates: start: 20110329, end: 20110621
  6. FEMODENE [Concomitant]
     Indication: CONTRACEPTION
  7. FEROGRAD [Concomitant]
     Indication: BLOOD IRON DECREASED
     Route: 048

REACTIONS (4)
  - UTERINE POLYP [None]
  - CERVIX CARCINOMA [None]
  - CERVICAL DYSPLASIA [None]
  - SURGERY [None]
